FAERS Safety Report 7719999-0 (Version None)
Quarter: 2011Q3

REPORT INFORMATION
  Report Type: 
  Country: None (occurrence: None)
  Receive Date: 20110831
  Receipt Date: 20110824
  Transmission Date: 20111222
  Serious: No
  Sender: FDA-Public Use
  Company Number: US-BIOGENIDEC-2011BI032767

PATIENT
  Sex: Female

DRUGS (3)
  1. TYSABRI [Suspect]
     Indication: MULTIPLE SCLEROSIS
     Route: 042
     Dates: start: 20110713
  2. AVONEX [Concomitant]
     Indication: MULTIPLE SCLEROSIS
     Route: 030
     Dates: start: 20010930
  3. TYSABRI [Suspect]
     Route: 042
     Dates: start: 20090528, end: 20110427

REACTIONS (2)
  - BALANCE DISORDER [None]
  - INFLUENZA [None]
